FAERS Safety Report 9531082 (Version 2)
Quarter: 2014Q2

REPORT INFORMATION
  Report Type: Spontaneous
  Country: US (occurrence: US)
  Receive Date: 20130918
  Receipt Date: 20140501
  Transmission Date: 20141212
  Serious: Yes (Hospitalization, Other)
  Sender: FDA-Public Use
  Company Number: US-BAYER-2013-111830

PATIENT
  Age: 32 Year
  Sex: Female
  Weight: 126.98 kg

DRUGS (3)
  1. YAZ [Suspect]
     Dosage: UNK
  2. YASMIN [Suspect]
     Indication: MENSTRUAL CYCLE MANAGEMENT
     Dosage: UNK
     Dates: start: 20050418, end: 20050802
  3. PERCOCET [Concomitant]

REACTIONS (9)
  - Pulmonary embolism [None]
  - Pulmonary infarction [None]
  - Cholelithiasis [None]
  - Depression [None]
  - Injury [None]
  - Pain [None]
  - Emotional distress [None]
  - Fear of death [None]
  - Nervousness [None]
